FAERS Safety Report 9050134 (Version 1)
Quarter: 2013Q1

REPORT INFORMATION
  Report Type: Spontaneous
  Country: US (occurrence: US)
  Receive Date: 20130204
  Receipt Date: 20130204
  Transmission Date: 20140127
  Serious: No
  Sender: FDA-Public Use
  Company Number: US-AMGEN-USASP2013006620

PATIENT
  Age: 76 Year
  Sex: Female
  Weight: 44.9 kg

DRUGS (2)
  1. ENBREL [Suspect]
     Indication: RHEUMATOID ARTHRITIS
     Dosage: UNK
     Dates: start: 2009, end: 201211
  2. HUMIRA [Concomitant]
     Indication: RHEUMATOID ARTHRITIS
     Dosage: 40 MG, 1 IN 2 WEEKS
     Dates: start: 20121129

REACTIONS (4)
  - Accidental exposure to product [Recovered/Resolved]
  - Lacrimation increased [Recovered/Resolved]
  - Weight decreased [Unknown]
  - Herpes zoster [Unknown]
